FAERS Safety Report 11436007 (Version 2)
Quarter: 2016Q2

REPORT INFORMATION
  Report Type: Report from Study
  Country: US (occurrence: US)
  Receive Date: 20150831
  Receipt Date: 20160525
  Transmission Date: 20160815
  Serious: Yes (Other)
  Sender: FDA-Public Use
  Company Number: US-BAYER-2015-405974

PATIENT
  Age: 63 Year
  Sex: Male

DRUGS (3)
  1. WARFARIN [Suspect]
     Active Substance: WARFARIN
     Indication: ANTICOAGULANT THERAPY
  2. CLOPIDOGREL [Suspect]
     Active Substance: CLOPIDOGREL BISULFATE
     Indication: ANTIPLATELET THERAPY
     Dosage: UNK
  3. ASPIRIN 325MG COATED 416 [Suspect]
     Active Substance: ASPIRIN
     Indication: ANTIPLATELET THERAPY

REACTIONS (2)
  - Labelled drug-drug interaction medication error [None]
  - Implant site haematoma [None]
